FAERS Safety Report 17425327 (Version 1)
Quarter: 2020Q1

REPORT INFORMATION
  Report Type: Spontaneous
  Country: FR (occurrence: FR)
  Receive Date: 20200217
  Receipt Date: 20200217
  Transmission Date: 20200409
  Serious: Yes (Death)
  Sender: FDA-Public Use
  Company Number: FR-SA-2020SA039966

PATIENT
  Age: 80 Year
  Sex: Female
  Weight: 88.9 kg

DRUGS (2)
  1. KARDEGIC [Suspect]
     Active Substance: ASPIRIN DL-LYSINE
     Indication: ISCHAEMIC STROKE
     Dosage: 75 MG, QD
     Route: 048
     Dates: start: 20200107, end: 20200113
  2. LOVENOX [Suspect]
     Active Substance: ENOXAPARIN SODIUM
     Indication: ATRIAL FIBRILLATION
     Dosage: 14000 IU, QD
     Route: 058
     Dates: start: 20200106, end: 20200112

REACTIONS (1)
  - Haematoma muscle [Fatal]

NARRATIVE: CASE EVENT DATE: 20200112
